FAERS Safety Report 19132161 (Version 1)
Quarter: 2021Q2

REPORT INFORMATION
  Report Type: Spontaneous
  Country: PL (occurrence: PL)
  Receive Date: 20210414
  Receipt Date: 20210414
  Transmission Date: 20210717
  Serious: Yes (Other)
  Sender: FDA-Public Use
  Company Number: PL-UCBSA-2021017086

PATIENT
  Age: 4 Year
  Sex: Male

DRUGS (1)
  1. LEVETIRACETAM. [Suspect]
     Active Substance: LEVETIRACETAM
     Indication: PRODUCT USED FOR UNKNOWN INDICATION
     Dosage: UNK

REACTIONS (8)
  - Cholestasis [Recovering/Resolving]
  - Hepatic function abnormal [Recovering/Resolving]
  - Somnolence [Recovering/Resolving]
  - Hypoglycaemia [Recovering/Resolving]
  - Infection [Recovering/Resolving]
  - Apathy [Recovering/Resolving]
  - Metabolic acidosis [Recovering/Resolving]
  - Coagulopathy [Recovering/Resolving]
